FAERS Safety Report 22152412 (Version 2)
Quarter: 2023Q1

REPORT INFORMATION
  Report Type: Spontaneous
  Country: US (occurrence: US)
  Receive Date: 20230329
  Receipt Date: 20230330
  Transmission Date: 20230418
  Serious: No
  Sender: FDA-Public Use
  Company Number: US-002147023-NVSC2023US069997

PATIENT
  Sex: Male

DRUGS (1)
  1. METRONIDAZOLE [Suspect]
     Active Substance: METRONIDAZOLE
     Indication: Pityriasis rosea
     Dosage: UNK
     Route: 065

REACTIONS (5)
  - Pityriasis rosea [Not Recovered/Not Resolved]
  - Rash morbilliform [Unknown]
  - Rash macular [Unknown]
  - Condition aggravated [Unknown]
  - Product use in unapproved indication [Unknown]
